FAERS Safety Report 16473466 (Version 2)
Quarter: 2019Q3

REPORT INFORMATION
  Report Type: Spontaneous
  Country: DE (occurrence: DE)
  Receive Date: 20190625
  Receipt Date: 20190716
  Transmission Date: 20191004
  Serious: Yes (Hospitalization, Other)
  Sender: FDA-Public Use
  Company Number: DE-009507513-1906DEU008921

PATIENT
  Sex: Female

DRUGS (1)
  1. KEYTRUDA [Suspect]
     Active Substance: PEMBROLIZUMAB
     Indication: METASTASES TO CENTRAL NERVOUS SYSTEM
     Dosage: UNK

REACTIONS (3)
  - Headache [Unknown]
  - Epilepsy [Unknown]
  - Vomiting [Unknown]
